FAERS Safety Report 22884446 (Version 2)
Quarter: 2023Q4

REPORT INFORMATION
  Report Type: Spontaneous
  Country: US (occurrence: US)
  Receive Date: 20230830
  Receipt Date: 20231129
  Transmission Date: 20240110
  Serious: Yes (Hospitalization, Other)
  Sender: FDA-Public Use
  Company Number: US-BRISTOL-MYERS SQUIBB COMPANY-2023-122205

PATIENT
  Age: 77 Year
  Sex: Female

DRUGS (1)
  1. ORENCIA [Suspect]
     Active Substance: ABATACEPT
     Indication: Product used for unknown indication
     Dosage: FREQUENCY: INJECT 125MG (1 SYRINGE) SUBCUTANEOUSLY ONCE A WEEK. STRENGTH: 125MG/ML 4-PFS.
     Route: 058

REACTIONS (5)
  - Hypokalaemia [Unknown]
  - Road traffic accident [Unknown]
  - Hypertension [Unknown]
  - Neck pain [Unknown]
  - Arthralgia [Unknown]

NARRATIVE: CASE EVENT DATE: 20230818
